FAERS Safety Report 12861323 (Version 4)
Quarter: 2016Q4

REPORT INFORMATION
  Report Type: Spontaneous
  Country: JP (occurrence: AU)
  Receive Date: 20161019
  Receipt Date: 20161121
  Transmission Date: 20170207
  Serious: Yes (Hospitalization, Other)
  Sender: FDA-Public Use
  Company Number: AU-ORION CORPORATION ORION PHARMA-ENT 2016-0206

PATIENT
  Age: 70 Year
  Sex: Male

DRUGS (8)
  1. LEVODOPA+CARBIDOPA [Suspect]
     Active Substance: CARBIDOPA\LEVODOPA
     Dosage: STRENGTH: 150/37.5 MG
     Route: 065
  2. MIRTAZAPINE. [Suspect]
     Active Substance: MIRTAZAPINE
     Dosage: AT NIGHT
     Route: 065
  3. ROTIGOTINA [Suspect]
     Active Substance: ROTIGOTINE
     Route: 065
  4. OLANZAPINE. [Suspect]
     Active Substance: OLANZAPINE
     Dosage: IN 2 DIVIDED DOSES
     Route: 065
  5. COMTAN [Suspect]
     Active Substance: ENTACAPONE
     Route: 065
  6. VENLAFAXINE XR [Suspect]
     Active Substance: VENLAFAXINE HYDROCHLORIDE
     Route: 065
  7. METOPROLOL. [Suspect]
     Active Substance: METOPROLOL
     Route: 065
  8. DIGOXIN. [Suspect]
     Active Substance: DIGOXIN
     Route: 065

REACTIONS (15)
  - Psychiatric decompensation [Unknown]
  - Blood chloride increased [Recovered/Resolved]
  - Dilatation atrial [Unknown]
  - Coronary artery disease [Unknown]
  - Lymphocyte count decreased [Not Recovered/Not Resolved]
  - Ventricular hypokinesia [Unknown]
  - Protein total decreased [Not Recovered/Not Resolved]
  - Systolic dysfunction [Unknown]
  - Tricuspid valve sclerosis [Unknown]
  - Ejection fraction decreased [Unknown]
  - Atrial fibrillation [Unknown]
  - Neutrophil count increased [Recovered/Resolved]
  - Myocardial infarction [Unknown]
  - Blood lactate dehydrogenase increased [Recovered/Resolved]
  - Mitral valve sclerosis [Unknown]

NARRATIVE: CASE EVENT DATE: 20160908
